FAERS Safety Report 15236419 (Version 3)
Quarter: 2018Q4

REPORT INFORMATION
  Report Type: Report from Study
  Country: AT (occurrence: AT)
  Receive Date: 20180803
  Receipt Date: 20181210
  Transmission Date: 20190204
  Serious: Yes (Hospitalization)
  Sender: FDA-Public Use
  Company Number: AT-ROCHE-2162318

PATIENT
  Age: 42 Year
  Sex: Female
  Weight: 58 kg

DRUGS (32)
  1. DUROTIV [Concomitant]
     Active Substance: ESOMEPRAZOLE
     Route: 065
     Dates: start: 20180115
  2. DIBONDRIN [Concomitant]
     Active Substance: DIPHENHYDRAMINE HYDROCHLORIDE
     Route: 065
     Dates: start: 20180109
  3. TAXOTERE [Suspect]
     Active Substance: DOCETAXEL
     Indication: BREAST CANCER
     Route: 042
     Dates: start: 20180109
  4. NALBUPHINE [Concomitant]
     Active Substance: NALBUPHINE
     Indication: PANCREATITIS
     Dosage: ONGOING = NOT CHECKED
     Route: 065
     Dates: start: 20180719, end: 20180719
  5. ANAEROBEX [Concomitant]
     Dosage: ONGOING = NOT CHECKED
     Route: 065
     Dates: start: 20180719, end: 20180805
  6. LONQUEX [Concomitant]
     Active Substance: LIPEGFILGRASTIM
     Route: 065
     Dates: start: 20180109
  7. PERTUZUMAB. [Suspect]
     Active Substance: PERTUZUMAB
     Indication: HER-2 POSITIVE BREAST CANCER
     Dosage: MOST RECENT DOSE PRIOR TO THE EVENT: 30/JAN/2018
     Route: 042
     Dates: start: 20180109, end: 20180109
  8. ZOFRAN [Concomitant]
     Active Substance: ONDANSETRON HYDROCHLORIDE
     Route: 065
     Dates: start: 20180115
  9. NEODOLPASSE [Concomitant]
     Indication: CHOLELITHIASIS
     Dosage: ONGOING = NOT CHECKED
     Route: 065
     Dates: start: 20180719, end: 20180724
  10. XGEVA [Suspect]
     Active Substance: DENOSUMAB
     Indication: BREAST CANCER
     Route: 058
     Dates: start: 20180109
  11. FORLAX [Concomitant]
     Active Substance: POLYETHYLENE GLYCOL 4000
     Route: 065
     Dates: start: 20180115
  12. EMEND [Concomitant]
     Active Substance: APREPITANT
     Dosage: ONGOING = CHECKED
     Route: 065
     Dates: start: 20180109
  13. MEXALEN [Concomitant]
     Active Substance: ACETAMINOPHEN
     Route: 065
     Dates: start: 20180115
  14. NOVALGIN (AUSTRIA) [Concomitant]
     Indication: PANCREATITIS
     Route: 065
     Dates: start: 20180719, end: 20180719
  15. UNASYN (AMPICILLIN SODIUM) [Concomitant]
     Indication: CHOLELITHIASIS
     Dosage: ONGOING = NOT CHECKED
     Route: 065
     Dates: start: 20180808, end: 20180808
  16. FORTECORTIN [Concomitant]
     Active Substance: DEXAMETHASONE
     Dosage: ONGOING = CHECKED
     Route: 065
     Dates: start: 20180109
  17. FORTECORTIN [Concomitant]
     Active Substance: DEXAMETHASONE
     Dosage: ONGOING = CHECKED
     Route: 065
     Dates: start: 20180109
  18. TRASTUZUMAB. [Suspect]
     Active Substance: TRASTUZUMAB
     Indication: HER-2 POSITIVE BREAST CANCER
     Dosage: MOST RECENT DOSE PRIOR TO THE EVENT: 30/JAN/2018
     Route: 042
     Dates: start: 20180109, end: 20180109
  19. BUSCAPINE [Concomitant]
     Active Substance: BUTYLSCOPOLAMINE
     Indication: PANCREATITIS
     Route: 065
     Dates: start: 20180719, end: 20180719
  20. KREON [Concomitant]
     Active Substance: PANCRELIPASE
     Dosage: ONGOING = CHECKED
     Route: 065
     Dates: start: 20180720
  21. NEODOLPASSE [Concomitant]
     Dosage: ONGOING = NOT CHECKED
     Route: 065
     Dates: start: 20180808, end: 20180809
  22. PASPERTIN (AUSTRIA) [Concomitant]
     Indication: PANCREATITIS
     Route: 065
     Dates: start: 20180719, end: 20180719
  23. ZOLDEM [Concomitant]
     Active Substance: ZOLPIDEM TARTRATE
     Dosage: ONGOING = NOT CHECKED
     Route: 065
     Dates: start: 20180720, end: 20180725
  24. FRAGMIN [Concomitant]
     Active Substance: DALTEPARIN SODIUM
     Indication: CHOLELITHIASIS
     Dosage: ONGOING = NOT CHECKED
     Route: 065
     Dates: start: 20180808, end: 20180810
  25. BUSCOPAN [Concomitant]
     Active Substance: BUTYLSCOPOLAMINE BROMIDE
     Indication: PANCREATITIS
     Route: 065
     Dates: start: 20180719, end: 20180719
  26. ANTIFLAT [Concomitant]
     Dosage: ONGOING = NOT CHECKED
     Route: 065
     Dates: start: 20180725, end: 20180728
  27. ZINNAT [Concomitant]
     Active Substance: CEFUROXIME AXETIL
     Indication: PANCREATITIS
     Dosage: ONGOING = NOT CHECKED
     Route: 065
     Dates: start: 20180719, end: 20180805
  28. EMEND [Concomitant]
     Active Substance: APREPITANT
     Route: 065
     Dates: start: 20180110
  29. ZOFRAN [Concomitant]
     Active Substance: ONDANSETRON HYDROCHLORIDE
     Route: 065
     Dates: start: 20180109
  30. ZOFRAN [Concomitant]
     Active Substance: ONDANSETRON HYDROCHLORIDE
     Dosage: ONGOING = CHECKED
     Route: 065
     Dates: start: 20180109
  31. FORTECORTIN [Concomitant]
     Active Substance: DEXAMETHASONE
     Route: 065
     Dates: start: 20180109
  32. BEPANTHEN MOUTH WASH (AUSTRIA) [Concomitant]
     Route: 065
     Dates: start: 20180115

REACTIONS (1)
  - Pancreatitis [Recovered/Resolved]

NARRATIVE: CASE EVENT DATE: 20180719
